FAERS Safety Report 6765182-5 (Version None)
Quarter: 2010Q2

REPORT INFORMATION
  Report Type: 
  Country: None (occurrence: None)
  Receive Date: 20100610
  Receipt Date: 20100610
  Transmission Date: 20101027
  Serious: Yes (Life-Threatening)
  Sender: FDA-Public Use
  Company Number: None

PATIENT
  Age: 81 Year
  Sex: Female
  Weight: 58.5 kg

DRUGS (4)
  1. LOVENOX [Suspect]
     Indication: THROMBOSIS PROPHYLAXIS
     Dosage: 60MG Q12 HRS. SQ
     Route: 058
     Dates: start: 20100502, end: 20100503
  2. COUMADIN [Concomitant]
  3. PHENERGAN [Concomitant]
  4. ZOFRAN [Concomitant]

REACTIONS (3)
  - HYPOTENSION [None]
  - INTRA-ABDOMINAL HAEMATOMA [None]
  - INTRA-ABDOMINAL HAEMORRHAGE [None]
